FAERS Safety Report 21512886 (Version 2)
Quarter: 2022Q4

REPORT INFORMATION
  Report Type: Report from Study
  Country: US (occurrence: US)
  Receive Date: 20221027
  Receipt Date: 20221206
  Transmission Date: 20230113
  Serious: Yes (Other)
  Sender: FDA-Public Use
  Company Number: US-ABBVIE-22K-163-4524982-00

PATIENT
  Sex: Male

DRUGS (2)
  1. IMBRUVICA [Suspect]
     Active Substance: IBRUTINIB
     Indication: Mantle cell lymphoma
     Dosage: DOSE REDUCED
     Route: 048
     Dates: start: 201511
  2. IMBRUVICA [Suspect]
     Active Substance: IBRUTINIB
     Indication: Mantle cell lymphoma
     Route: 048

REACTIONS (15)
  - Surgery [Unknown]
  - Asthenia [Unknown]
  - Neuropathy peripheral [Unknown]
  - Diarrhoea [Unknown]
  - Gastric disorder [Unknown]
  - Adenocarcinoma [Unknown]
  - Blood pressure increased [Unknown]
  - Unevaluable event [Unknown]
  - Dyspnoea exertional [Unknown]
  - White blood cell count abnormal [Unknown]
  - Hyperhidrosis [Unknown]
  - Mass [Unknown]
  - Dehydration [Unknown]
  - Lower respiratory tract infection [Unknown]
  - Post procedural complication [Unknown]
